FAERS Safety Report 8910620 (Version 1)
Quarter: 2012Q4

REPORT INFORMATION
  Report Type: Spontaneous
  Country: US (occurrence: None)
  Receive Date: 20121115
  Receipt Date: 20121115
  Transmission Date: 20130627
  Serious: Yes (Hospitalization, Other)
  Sender: FDA-Public Use
  Company Number: None

PATIENT
  Age: 51 Year
  Sex: Female

DRUGS (1)
  1. DEPO-MEDROL [Suspect]
     Dosage: 40 mg 1 Epidural Injection
     Route: 008
     Dates: start: 20120604

REACTIONS (4)
  - Headache [None]
  - Vomiting [None]
  - Musculoskeletal stiffness [None]
  - Photophobia [None]
